FAERS Safety Report 6376789-1 (Version None)
Quarter: 2009Q3

REPORT INFORMATION
  Report Type: 
  Country: None (occurrence: None)
  Receive Date: 20090924
  Receipt Date: 20090924
  Transmission Date: 20100115
  Serious: No
  Sender: FDA-Public Use
  Company Number: None

PATIENT

DRUGS (1)
  1. ORTHO CYCLEN-21 [Suspect]
     Dosage: 0.25-0.035

REACTIONS (1)
  - METRORRHAGIA [None]
